FAERS Safety Report 11052066 (Version 1)
Quarter: 2015Q2

REPORT INFORMATION
  Report Type: Spontaneous
  Country: US (occurrence: US)
  Receive Date: 20150421
  Receipt Date: 20150421
  Transmission Date: 20150821
  Serious: Yes (Life-Threatening)
  Sender: FDA-Public Use
  Company Number: US-BAYER-2015-094201

PATIENT
  Age: 71 Year
  Sex: Male
  Weight: 99 kg

DRUGS (5)
  1. MAGNESIUM OXIDE. [Concomitant]
     Active Substance: MAGNESIUM OXIDE
     Dosage: 400MG DAILY
     Route: 048
  2. ONDANSETRON [Concomitant]
     Active Substance: ONDANSETRON
     Dosage: PRN
  3. PROCHLORPERAZINE. [Concomitant]
     Active Substance: PROCHLORPERAZINE
     Dosage: PRN
  4. STIVARGA [Suspect]
     Active Substance: REGORAFENIB
     Indication: COLORECTAL CANCER METASTATIC
     Dosage: 120 MG, QD (3 TABLETS DAILY)
     Route: 048
     Dates: start: 20150112, end: 20150120
  5. LORAZEPAM. [Concomitant]
     Active Substance: LORAZEPAM
     Dosage: PRN

REACTIONS (1)
  - Duodenal perforation [None]

NARRATIVE: CASE EVENT DATE: 20150202
